FAERS Safety Report 4569607-5 (Version None)
Quarter: 2005Q1

REPORT INFORMATION
  Report Type: 
  Country: None (occurrence: None)
  Receive Date: 20050203
  Receipt Date: 20050104
  Transmission Date: 20050727
  Serious: Yes (Hospitalization, Other)
  Sender: FDA-Public Use
  Company Number: ES-ABBOTT-05P-144-0285438-00

PATIENT
  Age: 44 Year
  Sex: Male

DRUGS (8)
  1. RITONAVIR [Suspect]
     Indication: HIV INFECTION
     Dosage: NOT REPORTED
     Dates: start: 20020101, end: 20030801
  2. INDINAVIR [Suspect]
     Indication: HIV INFECTION
     Dosage: NOT REPORTED
     Dates: start: 20020101, end: 20030801
  3. GEMFIBROZIL [Suspect]
     Indication: DYSLIPIDAEMIA
     Dosage: NOT REPORTED
     Dates: start: 20021101, end: 20030801
  4. SIMVASTATIN [Suspect]
     Indication: DYSLIPIDAEMIA
     Dosage: NOT REPORTED
     Dates: start: 20030701, end: 20030801
  5. ACETYLSALICYLIC ACID SRT [Concomitant]
     Indication: ANTIPLATELET THERAPY
     Dates: start: 20030701
  6. CLOGPIDOGEL [Concomitant]
     Indication: ANTIPLATELET THERAPY
     Dates: start: 20030701
  7. ATENOLOL [Concomitant]
     Indication: DRUG USE FOR UNKNOWN INDICATION
     Dates: start: 20030701
  8. ENALAPRIL MALEATE [Concomitant]
     Indication: DRUG USE FOR UNKNOWN INDICATION
     Dates: start: 20030701

REACTIONS (3)
  - DRUG INTERACTION [None]
  - HAEMODIALYSIS [None]
  - RHABDOMYOLYSIS [None]
